FAERS Safety Report 11337468 (Version 1)
Quarter: 2015Q3

REPORT INFORMATION
  Report Type: Spontaneous
  Country: US (occurrence: US)
  Receive Date: 20150803
  Receipt Date: 20150803
  Transmission Date: 20151125
  Serious: No
  Sender: FDA-Public Use
  Company Number: US-ELI_LILLY_AND_COMPANY-US200907000519

PATIENT
  Age: 29 Year
  Sex: Male

DRUGS (4)
  1. VITAMIN E [Concomitant]
     Active Substance: .ALPHA.-TOCOPHEROL
  2. HALDOL [Concomitant]
     Active Substance: HALOPERIDOL
     Dosage: 100 MG, MONTHLY (1/M)
  3. HALDOL [Concomitant]
     Active Substance: HALOPERIDOL
     Dosage: 75 MG, MONTHLY (1/M)
     Route: 030
  4. ZYPREXA [Suspect]
     Active Substance: OLANZAPINE
     Indication: BIPOLAR DISORDER
     Dosage: 30 MG, DAILY (1/D)

REACTIONS (3)
  - Tardive dyskinesia [Unknown]
  - Prescribed overdose [Unknown]
  - Muscle twitching [Unknown]

NARRATIVE: CASE EVENT DATE: 200905
